FAERS Safety Report 7237574-1 (Version None)
Quarter: 2011Q1

REPORT INFORMATION
  Report Type: 
  Country: None (occurrence: None)
  Receive Date: 20110113
  Receipt Date: 20110107
  Transmission Date: 20110831
  Serious: Yes (Other)
  Sender: FDA-Public Use
  Company Number: TRP_07470_2010

PATIENT
  Sex: Male
  Weight: 70.7611 kg

DRUGS (2)
  1. INFERGEN [Suspect]
     Indication: HEPATITIS C
     Dosage: 15 UG QD SUBCUTANEOUS
     Route: 058
     Dates: start: 20101205, end: 20110106
  2. RIBAVIRIN [Suspect]
     Indication: HEPATITIS C
     Dosage: 1000 MG, DAILY [600/400] ORAL
     Route: 048
     Dates: start: 20101205, end: 20110106

REACTIONS (3)
  - MUSCLE SPASMS [None]
  - INJECTION SITE SWELLING [None]
  - DIZZINESS [None]
